FAERS Safety Report 16397202 (Version 4)
Quarter: 2019Q3

REPORT INFORMATION
  Report Type: Spontaneous
  Country: US (occurrence: US)
  Receive Date: 20190606
  Receipt Date: 20190719
  Transmission Date: 20191004
  Serious: Yes (Other)
  Sender: FDA-Public Use
  Company Number: US-ASTRAZENECA-2018SF13797

PATIENT
  Age: 21963 Day
  Sex: Male
  Weight: 83.9 kg

DRUGS (14)
  1. NEXIUM [Suspect]
     Active Substance: ESOMEPRAZOLE MAGNESIUM
     Indication: GASTRIC PH DECREASED
     Route: 048
     Dates: start: 200102, end: 201712
  2. VIAGRA [Concomitant]
     Active Substance: SILDENAFIL CITRATE
  3. ROLAIDS/ALKA ROLAIDS [Concomitant]
  4. NEXIUM [Suspect]
     Active Substance: ESOMEPRAZOLE MAGNESIUM
     Indication: GASTROOESOPHAGEAL REFLUX DISEASE
     Route: 048
     Dates: start: 200102, end: 201712
  5. OMEPRAZOLE. [Suspect]
     Active Substance: OMEPRAZOLE
     Indication: GASTROOESOPHAGEAL REFLUX DISEASE
     Route: 065
     Dates: start: 20100810, end: 20160525
  6. TYLENOL [Concomitant]
     Active Substance: ACETAMINOPHEN
  7. NEXIUM [Suspect]
     Active Substance: ESOMEPRAZOLE MAGNESIUM
     Indication: GASTRIC PH DECREASED
     Route: 048
     Dates: start: 20081208, end: 20090416
  8. NEXIUM [Suspect]
     Active Substance: ESOMEPRAZOLE MAGNESIUM
     Indication: GASTROOESOPHAGEAL REFLUX DISEASE
     Route: 048
     Dates: start: 20081208, end: 20090416
  9. SULAR [Concomitant]
     Active Substance: NISOLDIPINE
  10. NITROSTAT [Concomitant]
     Active Substance: NITROGLYCERIN
  11. SPIRONOLACTONE. [Concomitant]
     Active Substance: SPIRONOLACTONE
  12. TUMS [Concomitant]
     Active Substance: CALCIUM CARBONATE
  13. OMEPRAZOLE. [Suspect]
     Active Substance: OMEPRAZOLE
     Indication: GASTROOESOPHAGEAL REFLUX DISEASE
     Route: 065
  14. ASPIRIN. [Concomitant]
     Active Substance: ASPIRIN

REACTIONS (5)
  - Tubulointerstitial nephritis [Unknown]
  - Acute kidney injury [Unknown]
  - Renal failure [Unknown]
  - Renal injury [Unknown]
  - Chronic kidney disease [Not Recovered/Not Resolved]

NARRATIVE: CASE EVENT DATE: 20090417
